FAERS Safety Report 25527935 (Version 1)
Quarter: 2025Q3

REPORT INFORMATION
  Report Type: Spontaneous
  Country: EU (occurrence: EU)
  Receive Date: 20250708
  Receipt Date: 20250708
  Transmission Date: 20251021
  Serious: Yes (Death)
  Sender: AUROBINDO
  Company Number: EU-ABBVIE-6337463

PATIENT
  Age: 72 Year
  Sex: Male

DRUGS (18)
  1. AZACITIDINE [Suspect]
     Active Substance: AZACITIDINE
     Indication: Acute myeloid leukaemia
     Dosage: 150 MILLIGRAM/SQ. METER, ONCE A DAY
     Route: 065
     Dates: start: 20240918, end: 20240924
  2. AZACITIDINE [Suspect]
     Active Substance: AZACITIDINE
     Dosage: 142 MILLIGRAM/SQ. METER, ONCE A DAY
     Route: 065
     Dates: start: 20241108, end: 20241114
  3. AZACITIDINE [Suspect]
     Active Substance: AZACITIDINE
     Route: 065
     Dates: start: 20250117, end: 20250123
  4. VENETOCLAX [Suspect]
     Active Substance: VENETOCLAX
     Indication: Acute myeloid leukaemia
     Route: 048
     Dates: start: 20240918, end: 20240918
  5. VENETOCLAX [Suspect]
     Active Substance: VENETOCLAX
     Route: 048
     Dates: start: 20240919, end: 20240919
  6. VENETOCLAX [Suspect]
     Active Substance: VENETOCLAX
     Route: 048
     Dates: start: 20240920, end: 20240920
  7. VENETOCLAX [Suspect]
     Active Substance: VENETOCLAX
     Route: 048
     Dates: start: 20240921, end: 20241015
  8. VENETOCLAX [Suspect]
     Active Substance: VENETOCLAX
     Route: 048
     Dates: start: 20241108, end: 20241205
  9. VENETOCLAX [Suspect]
     Active Substance: VENETOCLAX
     Route: 048
     Dates: start: 20250117, end: 20250207
  10. PERFALGAN [Concomitant]
     Active Substance: ACETAMINOPHEN
     Indication: Haemorrhoids
     Route: 042
     Dates: start: 20250116, end: 20250116
  11. PERFALGAN [Concomitant]
     Active Substance: ACETAMINOPHEN
     Indication: Pyrexia
     Route: 042
     Dates: start: 20250118
  12. ABSTRAL [Concomitant]
     Active Substance: FENTANYL CITRATE
     Indication: Haemorrhoids
     Route: 048
     Dates: start: 20250116, end: 20250123
  13. LEVOFLOXACIN [Concomitant]
     Active Substance: LEVOFLOXACIN
     Indication: Antibiotic therapy
     Dosage: 500 MILLIGRAM, ONCE A DAY
     Route: 065
     Dates: start: 20240924
  14. LIDOCAINE [Concomitant]
     Active Substance: LIDOCAINE
     Indication: Haemorrhoids
     Route: 061
     Dates: start: 20250120, end: 20250120
  15. NOXAFIL [Concomitant]
     Active Substance: POSACONAZOLE
     Indication: Antifungal treatment
     Route: 048
     Dates: start: 20240924
  16. TEICOPLANIN [Concomitant]
     Active Substance: TEICOPLANIN
     Indication: Phlebitis
     Dosage: 463.8 MILLIGRAM, ONCE A DAY
     Route: 042
     Dates: start: 20250118, end: 20250120
  17. ALLOPURINOL [Concomitant]
     Active Substance: ALLOPURINOL
     Indication: Prophylaxis
     Route: 048
     Dates: start: 20240918, end: 20240924
  18. OMEPRAZOLE [Concomitant]
     Active Substance: OMEPRAZOLE
     Indication: Gastrointestinal disorder prophylaxis
     Route: 048
     Dates: start: 20240924

REACTIONS (5)
  - Pyrexia [Fatal]
  - Asthenia [Not Recovered/Not Resolved]
  - Arthralgia [Recovered/Resolved]
  - Haemorrhoids [Recovering/Resolving]
  - Phlebitis [Recovering/Resolving]

NARRATIVE: CASE EVENT DATE: 20241112
